FAERS Safety Report 13370752 (Version 1)
Quarter: 2017Q1

REPORT INFORMATION
  Report Type: Spontaneous
  Country: AT (occurrence: AT)
  Receive Date: 20170324
  Receipt Date: 20170324
  Transmission Date: 20170429
  Serious: Yes (Hospitalization)
  Sender: FDA-Public Use
  Company Number: AT-ASTRAZENECA-2017SE29651

PATIENT
  Age: 76 Year
  Sex: Female
  Weight: 73.2 kg

DRUGS (15)
  1. PANTOPRAZOLE SODIUM. [Concomitant]
     Active Substance: PANTOPRAZOLE SODIUM
     Dosage: 20-40 MG
     Route: 048
  2. OLEOVIT [Concomitant]
     Dosage: 28 GTT DROPS ONCE A WEEK
     Route: 048
  3. SEROQUEL [Suspect]
     Active Substance: QUETIAPINE FUMARATE
     Dosage: 400.0MG UNKNOWN
     Route: 048
     Dates: start: 20150127, end: 20150201
  4. SERTRALINE [Concomitant]
     Active Substance: SERTRALINE HYDROCHLORIDE
     Dosage: 50.0MG UNKNOWN
     Route: 048
     Dates: start: 201412, end: 20141230
  5. SERTRALINE [Concomitant]
     Active Substance: SERTRALINE HYDROCHLORIDE
     Dosage: 50.0MG UNKNOWN
     Route: 048
     Dates: start: 20141231, end: 20150213
  6. SEROQUEL [Suspect]
     Active Substance: QUETIAPINE FUMARATE
     Dosage: 25-250 MG
     Route: 048
     Dates: start: 20150115, end: 20150119
  7. SERTRALINE [Concomitant]
     Active Substance: SERTRALINE HYDROCHLORIDE
     Dosage: 150.0MG UNKNOWN
     Route: 048
     Dates: start: 20150214
  8. SEROQUEL [Suspect]
     Active Substance: QUETIAPINE FUMARATE
     Dosage: 300.0MG UNKNOWN
     Route: 048
     Dates: start: 20150120, end: 20150126
  9. DOMINAL [Concomitant]
     Dosage: 80.0MG UNKNOWN
     Route: 048
     Dates: start: 201412, end: 20150201
  10. ZOLDEM [Concomitant]
     Active Substance: ZOLPIDEM TARTRATE
     Dosage: 10.0MG UNKNOWN
     Route: 048
     Dates: start: 20150122, end: 20150201
  11. RAMIPRIL. [Concomitant]
     Active Substance: RAMIPRIL
     Dosage: 2.5MG UNKNOWN
     Route: 048
  12. XARELTO [Concomitant]
     Active Substance: RIVAROXABAN
     Dosage: 20.0MG UNKNOWN
     Route: 048
  13. CONCOR COR [Concomitant]
     Active Substance: BISOPROLOL FUMARATE
     Dosage: 5.0MG UNKNOWN
     Route: 048
  14. SIMVASTATIN. [Concomitant]
     Active Substance: SIMVASTATIN
     Dosage: 40.0MG UNKNOWN
     Route: 048
  15. LANITOP [Concomitant]
     Active Substance: METILDIGOXIN
     Dosage: 0.1MG UNKNOWN
     Route: 048

REACTIONS (2)
  - Delirium [Recovered/Resolved]
  - Delusional disorder, unspecified type [Unknown]

NARRATIVE: CASE EVENT DATE: 20150128
